FAERS Safety Report 6590331-1 (Version None)
Quarter: 2010Q1

REPORT INFORMATION
  Report Type: 
  Country: None (occurrence: None)
  Receive Date: 20100219
  Receipt Date: 20100210
  Transmission Date: 20100710
  Serious: Yes (Hospitalization)
  Sender: FDA-Public Use
  Company Number: GB-ASTRAZENECA-2010SE05967

PATIENT
  Age: 78 Year
  Sex: Female

DRUGS (6)
  1. ESOMEPRAZOLE [Suspect]
     Route: 048
  2. OMEPRAZOLE [Suspect]
     Indication: BARRETT'S OESOPHAGUS
     Route: 048
     Dates: start: 19990101
  3. PANTOPRAZOLE [Suspect]
     Route: 065
  4. ALFACALCIDOL [Concomitant]
  5. CALCICHEW D3 [Concomitant]
     Route: 048
  6. FUROSEMIDE [Concomitant]

REACTIONS (8)
  - CIRCULATORY COLLAPSE [None]
  - GAIT DISTURBANCE [None]
  - HYPOCALCAEMIA [None]
  - HYPOMAGNESAEMIA [None]
  - LETHARGY [None]
  - MUSCLE SPASMS [None]
  - PARAESTHESIA [None]
  - TETANY [None]
